FAERS Safety Report 4543195-1 (Version None)
Quarter: 2004Q4

REPORT INFORMATION
  Report Type: 
  Country: None (occurrence: None)
  Receive Date: 20041230
  Receipt Date: 20041230
  Transmission Date: 20050328
  Serious: Yes (Other)
  Sender: FDA-Public Use
  Company Number: None

PATIENT
  Sex: Male
  Weight: 90.7194 kg

DRUGS (4)
  1. ZOLOFT [Suspect]
     Indication: ANXIETY
     Dosage: 50  MG  ONCE DAILY  ORAL
     Route: 048
  2. ZOLOFT [Suspect]
     Indication: DEPRESSION
     Dosage: 50  MG  ONCE DAILY  ORAL
     Route: 048
  3. PAXIL CR [Suspect]
     Indication: ANXIETY
     Dosage: 37.5 MG  ONCE DAILY ORAL
     Route: 048
  4. PAXIL CR [Suspect]
     Indication: DEPRESSION
     Dosage: 37.5 MG  ONCE DAILY ORAL
     Route: 048

REACTIONS (5)
  - ANXIETY [None]
  - DRUG DEPENDENCE [None]
  - DRUG INEFFECTIVE [None]
  - DRUG WITHDRAWAL SYNDROME [None]
  - FEAR [None]
